FAERS Safety Report 4472937-9 (Version None)
Quarter: 2004Q4

REPORT INFORMATION
  Report Type: 
  Country: None (occurrence: None)
  Receive Date: 20041013
  Receipt Date: 20040924
  Transmission Date: 20050328
  Serious: Yes (Other)
  Sender: FDA-Public Use
  Company Number: DE-MERCK-0409DEU00168

PATIENT
  Age: 81 Year
  Sex: Female
  Weight: 49 kg

DRUGS (10)
  1. ACETYLDIGOXIN [Concomitant]
     Route: 048
  2. AMLODIPINE BESYLATE [Concomitant]
     Indication: HYPERTENSION
     Route: 048
  3. CALCIUM CARBONATE AND CHOLECALCIFEROL [Concomitant]
     Route: 048
  4. ENALAPRIL MALEATE AND HYDROCHLOROTHIAZIDE [Concomitant]
     Route: 048
  5. GLIMEPIRIDE [Concomitant]
     Indication: DIABETES MELLITUS
     Route: 048
  6. NALOXONE HYDROCHLORIDE AND TILIDINE HYDROCHLORIDE [Concomitant]
     Route: 048
  7. PANTOPRAZOLE SODIUM [Concomitant]
     Route: 048
  8. POLYETHYLENE GLYCOL 3350 AND POTASSIUM CHLORIDE AND SODIUM BICARBONATE [Concomitant]
     Route: 048
  9. VIOXX [Suspect]
     Indication: PAIN
     Route: 048
     Dates: start: 20040803, end: 20040823
  10. VIOXX [Suspect]
     Indication: HIP SURGERY
     Route: 048
     Dates: start: 20040803, end: 20040823

REACTIONS (2)
  - CHOLESTASIS [None]
  - HEPATOCELLULAR DAMAGE [None]
